FAERS Safety Report 18414475 (Version 1)
Quarter: 2020Q4

REPORT INFORMATION
  Report Type: Spontaneous
  Country: US (occurrence: US)
  Receive Date: 20201021
  Receipt Date: 20201021
  Transmission Date: 20210114
  Serious: Yes (Other)
  Sender: FDA-Public Use
  Company Number: None

PATIENT
  Age: 70 Year
  Sex: Female
  Weight: 85.5 kg

DRUGS (13)
  1. POTASSIUM CHLORIDE. [Concomitant]
     Active Substance: POTASSIUM CHLORIDE
  2. MAGNESIUM [Concomitant]
     Active Substance: MAGNESIUM
  3. MULTIVITAMIN [Concomitant]
     Active Substance: VITAMINS
  4. ETACRYNIC ACID [Concomitant]
     Active Substance: ETHACRYNIC ACID
  5. OLMESARTAN MEDOXOMIL 20 MG TAB (TABLETS IMPRINTED WITH ^437^ [Suspect]
     Active Substance: OLMESARTAN MEDOXOMIL
     Indication: HYPERTENSION
     Dosage: ?          QUANTITY:1 TABLET(S);?
     Route: 048
     Dates: start: 20200324, end: 20200326
  6. SYNTHROID [Concomitant]
     Active Substance: LEVOTHYROXINE SODIUM
  7. SIMVASTATIN. [Concomitant]
     Active Substance: SIMVASTATIN
  8. AREDS [Concomitant]
     Active Substance: MINERALS\VITAMINS
  9. BIO-FLEX [Concomitant]
  10. CHLORZOXAZONE. [Concomitant]
     Active Substance: CHLORZOXAZONE
  11. VITAMIN D3 [Concomitant]
     Active Substance: CHOLECALCIFEROL
  12. BENICAR [Concomitant]
     Active Substance: OLMESARTAN MEDOXOMIL
  13. ASPIRIN 81 MG [Concomitant]
     Active Substance: ASPIRIN

REACTIONS (9)
  - Therapeutic response changed [None]
  - Bronchitis [None]
  - Chest pain [None]
  - Body temperature increased [None]
  - Product substitution issue [None]
  - Blood pressure fluctuation [None]
  - Dysphonia [None]
  - Blood pressure increased [None]
  - Cough [None]

NARRATIVE: CASE EVENT DATE: 20200325
